FAERS Safety Report 20533226 (Version 2)
Quarter: 2022Q2

REPORT INFORMATION
  Report Type: Spontaneous
  Country: CN (occurrence: None)
  Receive Date: 20220301
  Receipt Date: 20220404
  Transmission Date: 20220720
  Serious: Yes (Hospitalization)
  Sender: FDA-Public Use
  Company Number: 2022A071068

PATIENT

DRUGS (1)
  1. BUDESONIDE\FORMOTEROL\GLYCOPYRRONIUM [Suspect]
     Active Substance: BUDESONIDE\FORMOTEROL\GLYCOPYRRONIUM
     Dosage: 1-2 TIMES A DAY
     Route: 055

REACTIONS (4)
  - Lung disorder [Unknown]
  - Device use issue [Unknown]
  - Wrong technique in product usage process [Unknown]
  - Device malfunction [Unknown]
